FAERS Safety Report 23470717 (Version 1)
Quarter: 2024Q1

REPORT INFORMATION
  Report Type: Spontaneous
  Country: CN (occurrence: CN)
  Receive Date: 20240202
  Receipt Date: 20240202
  Transmission Date: 20240410
  Serious: Yes (Other)
  Sender: FDA-Public Use
  Company Number: CN-SA-SAC20240201000763

PATIENT
  Age: 70 Year
  Sex: Male
  Weight: 70 kg

DRUGS (1)
  1. ELOXATIN [Suspect]
     Active Substance: OXALIPLATIN
     Indication: Adenocarcinoma of colon
     Dosage: 150 MG QD
     Route: 041
     Dates: start: 20240120, end: 20240120

REACTIONS (4)
  - Palpitations [Recovered/Resolved]
  - Oxygen saturation decreased [Recovering/Resolving]
  - Vomiting [Recovering/Resolving]
  - Nausea [Recovering/Resolving]

NARRATIVE: CASE EVENT DATE: 20240120
